FAERS Safety Report 5635836-2 (Version None)
Quarter: 2008Q1

REPORT INFORMATION
  Report Type: 
  Country: None (occurrence: None)
  Receive Date: 20080220
  Receipt Date: 19980610
  Transmission Date: 20080703
  Serious: Yes (Other)
  Sender: FDA-Public Use
  Company Number: WAES 98061361

PATIENT
  Age: 1 Day
  Sex: Female

DRUGS (9)
  1. . [Suspect]
     Indication: PATENT DUCTUS ARTERIOSUS
     Dosage: 160 MICROGM/DAILY INJ, 150 MICROGM/DAILY INJ
     Dates: start: 19971231, end: 19971231
  2. . [Suspect]
     Indication: PATENT DUCTUS ARTERIOSUS
     Dosage: 160 MICROGM/DAILY INJ, 150 MICROGM/DAILY INJ
     Dates: start: 19980102, end: 19980102
  3. AMIKACIN SULFATE [Concomitant]
  4. BERACTANT [Concomitant]
  5. DOBUTAMINE HCL [Concomitant]
  6. DOPAMINE HCL [Concomitant]
  7. FACTOR XIII [Concomitant]
  8. PLASMA PROTEIN FRACTION (HUMAN) [Concomitant]
  9. SULTAMICILLIN TOSYLATE [Concomitant]

REACTIONS (6)
  - ATRIOVENTRICULAR BLOCK [None]
  - BLOOD CREATININE INCREASED [None]
  - BLOOD UREA INCREASED [None]
  - CONDUCTION DISORDER [None]
  - HYPERKALAEMIA [None]
  - VENTRICULAR TACHYCARDIA [None]
